FAERS Safety Report 7397026-5 (Version None)
Quarter: 2011Q2

REPORT INFORMATION
  Report Type: 
  Country: None (occurrence: None)
  Receive Date: 20110406
  Receipt Date: 20101019
  Transmission Date: 20111010
  Serious: Yes (Hospitalization)
  Sender: FDA-Public Use
  Company Number: US-BAYER-201031338NA

PATIENT
  Sex: Female
  Weight: 70 kg

DRUGS (3)
  1. PREVACID [Concomitant]
  2. YAZ [Suspect]
     Indication: PRODUCT USED FOR UNKNOWN INDICATION
     Dosage: UNK
     Route: 048
     Dates: start: 20080101, end: 20080728
  3. ROLAIDS [Concomitant]

REACTIONS (4)
  - DYSPNOEA [None]
  - PULMONARY THROMBOSIS [None]
  - CHEST PAIN [None]
  - INJURY [None]
